FAERS Safety Report 24661912 (Version 3)
Quarter: 2024Q4

REPORT INFORMATION
  Report Type: Report from Study
  Country: CO (occurrence: CO)
  Receive Date: 20241125
  Receipt Date: 20241205
  Transmission Date: 20250115
  Serious: Yes (Other)
  Sender: EISAI
  Company Number: CO-Eisai-EC-2024-176507

PATIENT
  Age: 38 Year
  Sex: Female
  Weight: 80 kg

DRUGS (4)
  1. LENVIMA [Suspect]
     Active Substance: LENVATINIB
     Indication: Thyroid cancer
     Route: 048
     Dates: start: 20241005, end: 20241019
  2. LENVIMA [Suspect]
     Active Substance: LENVATINIB
     Route: 048
     Dates: start: 20241020, end: 20241103
  3. LENVIMA [Suspect]
     Active Substance: LENVATINIB
     Route: 048
     Dates: start: 20241104, end: 20241126
  4. LENVIMA [Suspect]
     Active Substance: LENVATINIB
     Route: 048
     Dates: start: 20241127

REACTIONS (6)
  - Hypertensive crisis [Recovered/Resolved]
  - Diarrhoea [Not Recovered/Not Resolved]
  - Hypertension [Recovering/Resolving]
  - Product use issue [Recovered/Resolved]
  - Oral mucosal blistering [Not Recovered/Not Resolved]
  - Cardiac hypertrophy [Not Recovered/Not Resolved]

NARRATIVE: CASE EVENT DATE: 20241001
